FAERS Safety Report 17266160 (Version 1)
Quarter: 2019Q4

REPORT INFORMATION
  Report Type: Spontaneous
  Country: US (occurrence: US)
  Receive Date: 20191219
  Receipt Date: 20191219
  Transmission Date: 20200122
  Serious: Yes (Hospitalization)
  Sender: FDA-Public Use
  Company Number: None

PATIENT
  Age: 66 Year
  Sex: Male

DRUGS (13)
  1. AMLODIPINE [Concomitant]
     Active Substance: AMLODIPINE BESYLATE
  2. BENICAR [Concomitant]
     Active Substance: OLMESARTAN MEDOXOMIL
  3. FLECAINIDE [Concomitant]
     Active Substance: FLECAINIDE
  4. PREDNISONE. [Concomitant]
     Active Substance: PREDNISONE
  5. HYDROCO/APAP [Concomitant]
     Active Substance: ACETAMINOPHEN\HYDROCODONE
  6. TAMSULOSIN [Concomitant]
     Active Substance: TAMSULOSIN
  7. ZOLPIDEM ER [Concomitant]
     Active Substance: ZOLPIDEM TARTRATE
  8. AMBIEN [Concomitant]
     Active Substance: ZOLPIDEM TARTRATE
  9. METOPROL SUC [Concomitant]
  10. VITAMIN D [Concomitant]
     Active Substance: VITAMIN D NOS
  11. ABIRATERONE ACETATE 250MG [Suspect]
     Active Substance: ABIRATERONE ACETATE
     Indication: PROSTATE CANCER
     Route: 048
     Dates: start: 20191026
  12. ELIQUIS [Concomitant]
     Active Substance: APIXABAN
  13. PROPAFENONE. [Concomitant]
     Active Substance: PROPAFENONE

REACTIONS (2)
  - Therapy cessation [None]
  - Renal stone removal [None]

NARRATIVE: CASE EVENT DATE: 20191205
